FAERS Safety Report 4388565-X (Version None)
Quarter: 2004Q2

REPORT INFORMATION
  Report Type: 
  Country: None (occurrence: None)
  Receive Date: 20040624
  Receipt Date: 20040614
  Transmission Date: 20050107
  Serious: Yes (Other)
  Sender: FDA-Public Use
  Company Number: 200410394BCA

PATIENT
  Sex: Female

DRUGS (7)
  1. PLASBUMIN-5 [Suspect]
     Dosage: 250 ML, INTRAVENOUS; 250 ML, INTRAVENOUS
     Route: 042
     Dates: start: 19900822
  2. PLASBUMIN-5 [Suspect]
     Dates: start: 19900820
  3. PLASBUMIN-5 [Suspect]
     Dates: start: 19900820
  4. PLASBUMIN-5 [Suspect]
     Dates: start: 19910820
  5. PLASBUMIN-5 [Suspect]
     Dates: start: 19900820
  6. PLASBUMIN-5 [Suspect]
     Dates: start: 19900827
  7. PLASBUMIN-5 [Suspect]
     Dates: start: 19900827

REACTIONS (1)
  - HEPATITIS C POSITIVE [None]
